FAERS Safety Report 16083121 (Version 1)
Quarter: 2019Q1

REPORT INFORMATION
  Report Type: Spontaneous
  Country: PT (occurrence: PT)
  Receive Date: 20190318
  Receipt Date: 20190318
  Transmission Date: 20190418
  Serious: Yes (Other)
  Sender: FDA-Public Use
  Company Number: PT-ACCORD-113742

PATIENT
  Sex: Female

DRUGS (6)
  1. VIARTRIL-S [Concomitant]
     Indication: OSTEOARTHRITIS
     Route: 048
     Dates: start: 2012
  2. OCULOTECT [Concomitant]
     Indication: MACULAR DEGENERATION
     Route: 047
  3. ATACAND [Concomitant]
     Active Substance: CANDESARTAN CILEXETIL
     Indication: HYPERTENSION
     Dosage: IT IS NOT KNOWN WHETHER THE PATIENT IS ON THERAPY.
     Route: 048
     Dates: start: 2012
  4. CAPECITABINE. [Suspect]
     Active Substance: CAPECITABINE
     Indication: LUNG ADENOCARCINOMA
     Route: 065
  5. IRESSA [Suspect]
     Active Substance: GEFITINIB
     Indication: LUNG ADENOCARCINOMA
     Dosage: VALIDITY: 30-SEP-2017.
     Route: 048
     Dates: start: 20150210
  6. OMEPRAZOLE. [Concomitant]
     Active Substance: OMEPRAZOLE
     Indication: PRODUCT USED FOR UNKNOWN INDICATION
     Route: 048

REACTIONS (9)
  - Alopecia [Recovered/Resolved]
  - Nail disorder [Not Recovered/Not Resolved]
  - Paronychia [Recovered/Resolved]
  - Dry eye [Recovered/Resolved]
  - Pyogenic granuloma [Recovered/Resolved]
  - Growth of eyelashes [Recovered/Resolved]
  - Dry mouth [Recovered/Resolved]
  - Corneal erosion [Recovered/Resolved]
  - Gingival bleeding [Recovered/Resolved]

NARRATIVE: CASE EVENT DATE: 2015
